FAERS Safety Report 26098866 (Version 1)
Quarter: 2025Q4

REPORT INFORMATION
  Report Type: Spontaneous
  Country: HK (occurrence: HK)
  Receive Date: 20251127
  Receipt Date: 20251127
  Transmission Date: 20260118
  Serious: No
  Sender: ALKEM
  Company Number: HK-ALKEM LABORATORIES LIMITED-HK-ALKEM-2025-05381

PATIENT
  Age: 49 Year
  Sex: Female

DRUGS (7)
  1. MYCOPHENOLATE MOFETIL [Suspect]
     Active Substance: MYCOPHENOLATE MOFETIL
     Indication: Systemic lupus erythematosus
     Dosage: UNK
     Route: 065
  2. MYCOPHENOLATE MOFETIL [Suspect]
     Active Substance: MYCOPHENOLATE MOFETIL
     Dosage: 500 MILLIGRAM (2 DOSES) (1ST COURSE)
     Route: 065
  3. MYCOPHENOLATE MOFETIL [Suspect]
     Active Substance: MYCOPHENOLATE MOFETIL
     Dosage: 750 MILLIGRAM, BID
     Route: 065
  4. PREDNISOLONE [Suspect]
     Active Substance: PREDNISOLONE
     Indication: Systemic lupus erythematosus
     Dosage: UNK
     Route: 065
  5. PREDNISOLONE [Suspect]
     Active Substance: PREDNISOLONE
     Dosage: 6 MILLIGRAM (EVERY MORNING)
     Route: 065
  6. CYCLOPHOSPHAMIDE [Concomitant]
     Active Substance: CYCLOPHOSPHAMIDE
     Indication: Systemic lupus erythematosus
     Dosage: UNK (EURO-LUPUS REGIMEN)
     Route: 042
  7. RITUXIMAB [Concomitant]
     Active Substance: RITUXIMAB
     Indication: Systemic lupus erythematosus
     Dosage: 1 GRAM (2 DOSES) (2ND COURSE)
     Route: 065

REACTIONS (1)
  - Treatment noncompliance [Unknown]
